FAERS Safety Report 6977475-7 (Version None)
Quarter: 2010Q3

REPORT INFORMATION
  Report Type: 
  Country: None (occurrence: None)
  Receive Date: 20100910
  Receipt Date: 20100902
  Transmission Date: 20110219
  Serious: Yes (Hospitalization)
  Sender: FDA-Public Use
  Company Number: US-ABBOTT-10P-163-0668137-00

PATIENT
  Age: 23 Year
  Sex: Female

DRUGS (6)
  1. HUMIRA [Suspect]
     Indication: ANKYLOSING SPONDYLITIS
     Dates: start: 20090601, end: 20090801
  2. CONCERTA [Concomitant]
     Indication: PRODUCT USED FOR UNKNOWN INDICATION
     Route: 048
     Dates: end: 20090901
  3. CONCERTA [Concomitant]
  4. ETODOLAC [Concomitant]
     Indication: PRODUCT USED FOR UNKNOWN INDICATION
     Route: 048
  5. DICYCLOMINE [Concomitant]
     Indication: PRODUCT USED FOR UNKNOWN INDICATION
     Dates: end: 20090901
  6. PRENATAL VITAMINS [Concomitant]
     Indication: PRODUCT USED FOR UNKNOWN INDICATION

REACTIONS (4)
  - BLOOD PRESSURE INCREASED [None]
  - PRE-ECLAMPSIA [None]
  - SWELLING [None]
  - WEIGHT INCREASED [None]
